FAERS Safety Report 4503594-0 (Version None)
Quarter: 2004Q4

REPORT INFORMATION
  Report Type: 
  Country: None (occurrence: None)
  Receive Date: 20041115
  Receipt Date: 20041109
  Transmission Date: 20050328
  Serious: Yes (Hospitalization)
  Sender: FDA-Public Use
  Company Number: ZONI002049

PATIENT
  Age: 22 Year
  Sex: Female

DRUGS (2)
  1. EXCEGRAN (ZONISAMIDE) [Suspect]
     Indication: EPILEPSY
     Dosage: ORAL
     Route: 048
     Dates: start: 20040318, end: 20040504
  2. DEPAKENE [Concomitant]

REACTIONS (11)
  - ALANINE AMINOTRANSFERASE INCREASED [None]
  - ASPARTATE AMINOTRANSFERASE INCREASED [None]
  - BLOOD PRESSURE DIASTOLIC DECREASED [None]
  - DRUG HYPERSENSITIVITY [None]
  - HEART RATE INCREASED [None]
  - HERPES SIMPLEX SEROLOGY POSITIVE [None]
  - LYMPHOCYTE MORPHOLOGY ABNORMAL [None]
  - NEUTROPHIL COUNT INCREASED [None]
  - PYREXIA [None]
  - RUBELLA [None]
  - STEVENS-JOHNSON SYNDROME [None]
